FAERS Safety Report 5698294-8 (Version None)
Quarter: 2008Q2

REPORT INFORMATION
  Report Type: 
  Country: None (occurrence: None)
  Receive Date: 20080408
  Receipt Date: 20080407
  Transmission Date: 20081010
  Serious: Yes (Hospitalization)
  Sender: FDA-Public Use
  Company Number: DE-BOEHRINGER INGELHEIM GMBH, GERMANY-2008-DE-02044DE

PATIENT
  Sex: Male

DRUGS (4)
  1. SIFROL [Suspect]
     Indication: RESTLESS LEGS SYNDROME
     Route: 048
  2. CABASERIL [Concomitant]
  3. OXYGESIC [Concomitant]
  4. GABAPENTIN [Concomitant]

REACTIONS (4)
  - BALANCE DISORDER [None]
  - DRUG INTOLERANCE [None]
  - GAIT DISTURBANCE [None]
  - MOVEMENT DISORDER [None]
